FAERS Safety Report 7416299-3 (Version None)
Quarter: 2011Q2

REPORT INFORMATION
  Report Type: 
  Country: None (occurrence: None)
  Receive Date: 20110414
  Receipt Date: 20110407
  Transmission Date: 20111010
  Serious: Yes (Other)
  Sender: FDA-Public Use
  Company Number: FR-ELI_LILLY_AND_COMPANY-FR201104002807

PATIENT
  Age: 72 Year
  Sex: Male

DRUGS (3)
  1. LIPANTHYL [Concomitant]
     Dosage: UNK, UNKNOWN
  2. STRONTIUM [Concomitant]
     Dosage: UNK, UNKNOWN
  3. CIALIS [Suspect]
     Indication: ERECTILE DYSFUNCTION
     Dosage: 20 MG, UNK
     Route: 048

REACTIONS (1)
  - DEEP VEIN THROMBOSIS [None]
